FAERS Safety Report 5416566-9 (Version None)
Quarter: 2007Q3

REPORT INFORMATION
  Report Type: 
  Country: None (occurrence: None)
  Receive Date: 20070814
  Receipt Date: 20070814
  Transmission Date: 20080115
  Serious: No
  Sender: FDA-Public Use
  Company Number: None

PATIENT
  Age: 17 Year
  Sex: Male
  Weight: 72.5755 kg

DRUGS (1)
  1. TERBINAFINE 250 MG GLENMARK [Suspect]
     Indication: ONYCHOMYCOSIS
     Dosage: 1 TABLET PER DAY PO
     Route: 048
     Dates: start: 20070717, end: 20070810

REACTIONS (6)
  - DYSPEPSIA [None]
  - FATIGUE [None]
  - MYALGIA [None]
  - PHARYNGOLARYNGEAL PAIN [None]
  - RASH [None]
  - URTICARIA [None]
